FAERS Safety Report 8271125-8 (Version None)
Quarter: 2012Q2

REPORT INFORMATION
  Report Type: 
  Country: None (occurrence: None)
  Receive Date: 20120410
  Receipt Date: 20120402
  Transmission Date: 20120825
  Serious: Yes (Hospitalization)
  Sender: FDA-Public Use
  Company Number: FR-PFIZER INC-2012082326

PATIENT
  Age: 65 Year
  Sex: Female

DRUGS (8)
  1. INSULIN [Concomitant]
  2. RAMIPRIL [Interacting]
     Dosage: 10 MG, 1X/DAY
     Route: 048
  3. CLONAZEPAM [Concomitant]
     Dosage: 25 GTT, 1X/DAY
     Route: 048
  4. CRESTOR [Concomitant]
     Dosage: 5 MG, 1X/DAY
     Route: 048
  5. GLUCOPHAGE [Concomitant]
     Dosage: 500 MG, 2X/DAY
     Route: 048
  6. CELECTOL [Concomitant]
     Dosage: 200 MG, 1X/DAY
     Route: 048
  7. ALDACTONE [Suspect]
     Dosage: 125 MG, 1X/DAY
     Route: 048
     Dates: start: 20111026, end: 20120115
  8. LASIX [Concomitant]
     Dosage: 20 MG, 1X/DAY
     Route: 048

REACTIONS (5)
  - DRUG INTERACTION [None]
  - HYPERKALAEMIA [None]
  - MALAISE [None]
  - FALL [None]
  - RENAL FAILURE ACUTE [None]
